FAERS Safety Report 7748466-3 (Version None)
Quarter: 2011Q3

REPORT INFORMATION
  Report Type: 
  Country: None (occurrence: None)
  Receive Date: 20110914
  Receipt Date: 20110906
  Transmission Date: 20111222
  Serious: Yes (Hospitalization)
  Sender: FDA-Public Use
  Company Number: US-BIOGENIDEC-2011BI020288

PATIENT
  Age: 49 Year
  Sex: Female

DRUGS (3)
  1. AVONEX [Suspect]
     Indication: MULTIPLE SCLEROSIS
     Route: 030
     Dates: start: 20100903
  2. AVONEX [Suspect]
     Route: 030
     Dates: start: 19960601
  3. AVONEX [Suspect]
     Route: 030
     Dates: start: 20030814

REACTIONS (2)
  - URINARY TRACT INFECTION [None]
  - PNEUMONIA [None]
